FAERS Safety Report 7207651-X (Version None)
Quarter: 2011Q1

REPORT INFORMATION
  Report Type: 
  Country: None (occurrence: None)
  Receive Date: 20110103
  Receipt Date: 20101223
  Transmission Date: 20110831
  Serious: Yes (Life-Threatening, Hospitalization)
  Sender: FDA-Public Use
  Company Number: GB-PERRIGO-10GB015782

PATIENT
  Age: 21 Year
  Sex: Female
  Weight: 57 kg

DRUGS (5)
  1. FLUCONAZOLE [Suspect]
     Indication: CANDIDIASIS
     Dosage: 150 MG, UNK
     Route: 048
     Dates: start: 20101203, end: 20101203
  2. CETIRIZINE HCL [Concomitant]
     Indication: PRODUCT USED FOR UNKNOWN INDICATION
     Dosage: UNK
     Route: 065
  3. ADCAL D3 [Concomitant]
     Indication: PRODUCT USED FOR UNKNOWN INDICATION
     Dosage: UNK
     Route: 065
  4. FERROUS FUMARATE [Concomitant]
     Indication: PRODUCT USED FOR UNKNOWN INDICATION
  5. MICONAZOLE NITRATE [Suspect]
     Indication: CANDIDIASIS
     Dosage: UNK
     Route: 067
     Dates: start: 20101203, end: 20101203

REACTIONS (5)
  - MALAISE [None]
  - URTICARIA [None]
  - RASH [None]
  - DYSPNOEA [None]
  - ANAPHYLACTIC SHOCK [None]
